FAERS Safety Report 13178730 (Version 1)
Quarter: 2017Q1

REPORT INFORMATION
  Report Type: Spontaneous
  Country: US (occurrence: US)
  Receive Date: 20170202
  Receipt Date: 20170202
  Transmission Date: 20170428
  Serious: Yes (Hospitalization)
  Sender: FDA-Public Use
  Company Number: US-PROCTER+GAMBLE-GS17010032

PATIENT
  Age: 2 Year
  Sex: Male

DRUGS (1)
  1. BABYRUB (EUCALYPTUS OIL) [Suspect]
     Active Substance: EUCALYPTUS OIL
     Dosage: UNKNOWN USE AND FREQUENCY
     Route: 061

REACTIONS (1)
  - Pneumonia [Unknown]
